FAERS Safety Report 11190566 (Version 1)
Quarter: 2015Q2

REPORT INFORMATION
  Report Type: Spontaneous
  Country: US (occurrence: US)
  Receive Date: 20150615
  Receipt Date: 20150615
  Transmission Date: 20150821
  Serious: No
  Sender: FDA-Public Use
  Company Number: US-GLAXOSMITHKLINE-US2015079887

PATIENT
  Age: 67 Year
  Sex: Male

DRUGS (1)
  1. FLONASE [Suspect]
     Active Substance: FLUTICASONE PROPIONATE
     Indication: HYPERSENSITIVITY
     Dosage: UNK
     Dates: start: 201503

REACTIONS (4)
  - Palpitations [Recovered/Resolved]
  - Chest discomfort [Recovered/Resolved]
  - Feeling abnormal [Recovered/Resolved]
  - Weight increased [Not Recovered/Not Resolved]
